FAERS Safety Report 15146138 (Version 1)
Quarter: 2018Q3

REPORT INFORMATION
  Report Type: Spontaneous
  Country: US (occurrence: US)
  Receive Date: 20180714
  Receipt Date: 20180714
  Transmission Date: 20181010
  Serious: Yes (Hospitalization, Other)
  Sender: FDA-Public Use
  Company Number: US-STRIDES ARCOLAB LIMITED-2017SP009761

PATIENT

DRUGS (15)
  1. MYCOPHENOLATE MOFETIL. [Suspect]
     Active Substance: MYCOPHENOLATE MOFETIL
     Indication: RENAL TRANSPLANT
     Dosage: UNK
     Route: 065
  2. LEFLUNOMIDE. [Suspect]
     Active Substance: LEFLUNOMIDE
     Dosage: 15 MG, DAILY
     Route: 065
  3. PREDNISOLONE. [Suspect]
     Active Substance: PREDNISOLONE
     Dosage: 5 MG, DAILY
     Route: 065
  4. THYMOGLOBULIN [Suspect]
     Active Substance: LAPINE T-LYMPHOCYTE IMMUNE GLOBULIN
     Indication: RENAL TRANSPLANT
     Dosage: UNK
     Route: 065
  5. THYMOGLOBULIN [Suspect]
     Active Substance: LAPINE T-LYMPHOCYTE IMMUNE GLOBULIN
     Dosage: UNK
     Route: 065
  6. LEFLUNOMIDE. [Suspect]
     Active Substance: LEFLUNOMIDE
     Indication: RENAL TRANSPLANT
     Dosage: UNK
     Route: 065
  7. PREDNISOLONE. [Suspect]
     Active Substance: PREDNISOLONE
     Indication: RENAL TRANSPLANT
     Dosage: UNK
     Route: 065
  8. PREDNISOLONE. [Suspect]
     Active Substance: PREDNISOLONE
     Dosage: UNK
     Route: 065
  9. TACROLIMUS. [Suspect]
     Active Substance: TACROLIMUS
     Indication: RENAL TRANSPLANT
     Dosage: UNK
     Route: 065
  10. SIROLIMUS. [Suspect]
     Active Substance: SIROLIMUS
     Dosage: UNK
     Route: 065
  11. PREDNISOLONE. [Suspect]
     Active Substance: PREDNISOLONE
     Dosage: 5 MG, QOD
     Route: 065
  12. MYCOPHENOLATE MOFETIL. [Suspect]
     Active Substance: MYCOPHENOLATE MOFETIL
     Dosage: UNK
     Route: 065
  13. TACROLIMUS. [Suspect]
     Active Substance: TACROLIMUS
     Dosage: UNK
     Route: 065
  14. TACROLIMUS. [Suspect]
     Active Substance: TACROLIMUS
     Dosage: 1 MG, BID, LOW DOSE
     Route: 065
  15. SIROLIMUS. [Suspect]
     Active Substance: SIROLIMUS
     Indication: RENAL TRANSPLANT
     Dosage: UNK, UNKNOWN
     Route: 065

REACTIONS (25)
  - Respiratory syncytial virus bronchiolitis [Unknown]
  - Productive cough [Unknown]
  - Bronchopulmonary aspergillosis [Recovered/Resolved]
  - Sinusitis [Unknown]
  - Cough [Unknown]
  - Renal transplant failure [Unknown]
  - Urinary tract infection [Unknown]
  - Haematuria [Unknown]
  - Sputum discoloured [Unknown]
  - Obstructive airways disorder [Unknown]
  - Rhonchi [Unknown]
  - Upper respiratory tract infection [Unknown]
  - Atelectasis [Unknown]
  - Upper-airway cough syndrome [Unknown]
  - Wheezing [Unknown]
  - Pyrexia [Recovered/Resolved]
  - Epstein-Barr viraemia [Unknown]
  - Abdominal pain [Unknown]
  - Chronic allograft nephropathy [Unknown]
  - Asthma [Unknown]
  - BK virus infection [Recovered/Resolved]
  - Pyelonephritis [Unknown]
  - Headache [Unknown]
  - Retention cyst [Unknown]
  - Pneumonia [Unknown]
